FAERS Safety Report 25827832 (Version 1)
Quarter: 2025Q3

REPORT INFORMATION
  Report Type: Spontaneous
  Country: CH (occurrence: CH)
  Receive Date: 20250921
  Receipt Date: 20250921
  Transmission Date: 20251021
  Serious: No
  Sender: TRAVERE THERAPEUTICS
  Company Number: CH-BEH-2025214465

PATIENT
  Sex: Male

DRUGS (2)
  1. FILSPARI [Suspect]
     Active Substance: SPARSENTAN
     Indication: Product used for unknown indication
     Dosage: 200 MG, QD,BEFORE THE BREAK
     Route: 065
     Dates: end: 20250716
  2. FILSPARI [Suspect]
     Active Substance: SPARSENTAN
     Dosage: 400 MG, QD, AFTER THE BREAK
     Route: 065
     Dates: start: 20250725

REACTIONS (1)
  - Product dose omission in error [Unknown]

NARRATIVE: CASE EVENT DATE: 20250101
